FAERS Safety Report 4682031-X (Version None)
Quarter: 2005Q2

REPORT INFORMATION
  Report Type: 
  Country: None (occurrence: None)
  Receive Date: 20050606
  Receipt Date: 20050524
  Transmission Date: 20051028
  Serious: Yes (Hospitalization)
  Sender: FDA-Public Use
  Company Number: FR-JNJFOC-20031002646

PATIENT
  Age: 50 Year
  Sex: Male
  Weight: 78 kg

DRUGS (6)
  1. REMICADE [Suspect]
     Indication: ANKYLOSING SPONDYLITIS
     Dosage: 9 DOSES
     Route: 042
  2. KARDEGIC [Concomitant]
     Route: 049
  3. OMEPRAZOLE [Concomitant]
     Indication: GASTRIC DISORDER
     Route: 049
  4. PLAVIX [Concomitant]
     Indication: ATHEROSCLEROSIS
     Route: 049
  5. TRIATEC [Concomitant]
     Indication: HYPERTENSION
     Route: 049
  6. FOSAMAX [Concomitant]
     Route: 049

REACTIONS (9)
  - AORTIC VALVE INCOMPETENCE [None]
  - ARTERIOSPASM CORONARY [None]
  - BLOOD PRESSURE DECREASED [None]
  - CARDIAC FAILURE [None]
  - CARDIAC VALVE DISEASE [None]
  - ISCHAEMIC CARDIOMYOPATHY [None]
  - MYOCARDIAL INFARCTION [None]
  - SYNCOPE [None]
  - VENTRICULAR TACHYCARDIA [None]
